FAERS Safety Report 6442890-7 (Version None)
Quarter: 2009Q4

REPORT INFORMATION
  Report Type: 
  Country: None (occurrence: None)
  Receive Date: 20091117
  Receipt Date: 20091103
  Transmission Date: 20100525
  Serious: Yes (Hospitalization, Other)
  Sender: FDA-Public Use
  Company Number: FR-BRISTOL-MYERS SQUIBB COMPANY-14533020

PATIENT
  Age: 49 Year
  Sex: Female

DRUGS (3)
  1. REYATAZ [Suspect]
     Indication: HIV INFECTION
     Dates: start: 20040429, end: 20070418
  2. NORVIR [Suspect]
  3. KIVEXA [Concomitant]

REACTIONS (5)
  - ANAEMIA MACROCYTIC [None]
  - CALCULUS URINARY [None]
  - RENAL COLIC [None]
  - RENAL FAILURE CHRONIC [None]
  - TUBULOINTERSTITIAL NEPHRITIS [None]
